FAERS Safety Report 20089249 (Version 1)
Quarter: 2021Q4

REPORT INFORMATION
  Report Type: Report from Study
  Country: US (occurrence: US)
  Receive Date: 20211119
  Receipt Date: 20211119
  Transmission Date: 20220304
  Serious: No
  Sender: FDA-Public Use
  Company Number: US-Ipsen Biopharmaceuticals, Inc.-2021-28401

PATIENT
  Age: 51 Year
  Sex: Male

DRUGS (1)
  1. SOMATULINE DEPOT [Suspect]
     Active Substance: LANREOTIDE ACETATE
     Indication: Carcinoid tumour
     Dosage: 120MG
     Route: 058
     Dates: start: 2016

REACTIONS (2)
  - Flatulence [Recovered/Resolved with Sequelae]
  - Back pain [Recovered/Resolved with Sequelae]
